FAERS Safety Report 11543919 (Version 23)
Quarter: 2021Q2

REPORT INFORMATION
  Report Type: Other
  Country: CA (occurrence: CA)
  Receive Date: 20150924
  Receipt Date: 20210518
  Transmission Date: 20210716
  Serious: Yes (Hospitalization, Other)
  Sender: FDA-Public Use
  Company Number: CA-ROCHE-GNE302571

PATIENT
  Age: 41 Year
  Sex: Female
  Weight: 65 kg

DRUGS (14)
  1. XOLAIR [Suspect]
     Active Substance: OMALIZUMAB
     Route: 058
     Dates: start: 20190605
  2. XOLAIR [Suspect]
     Active Substance: OMALIZUMAB
     Route: 058
     Dates: start: 20190704
  3. XOLAIR [Suspect]
     Active Substance: OMALIZUMAB
     Route: 058
     Dates: start: 20200212
  4. XOLAIR [Suspect]
     Active Substance: OMALIZUMAB
     Route: 058
     Dates: start: 20200504
  5. XOLAIR [Suspect]
     Active Substance: OMALIZUMAB
     Route: 058
     Dates: start: 20200817
  6. VENOFER [Suspect]
     Active Substance: IRON SUCROSE
     Indication: PRODUCT USED FOR UNKNOWN INDICATION
     Route: 065
  7. XOLAIR [Suspect]
     Active Substance: OMALIZUMAB
     Route: 058
     Dates: start: 20200113
  8. XOLAIR [Suspect]
     Active Substance: OMALIZUMAB
     Route: 058
  9. XOLAIR [Suspect]
     Active Substance: OMALIZUMAB
     Route: 058
  10. XOLAIR [Suspect]
     Active Substance: OMALIZUMAB
     Route: 058
  11. XOLAIR [Suspect]
     Active Substance: OMALIZUMAB
     Route: 058
  12. XOLAIR [Suspect]
     Active Substance: OMALIZUMAB
     Indication: ASTHMA
     Route: 058
     Dates: start: 20070413
  13. XOLAIR [Suspect]
     Active Substance: OMALIZUMAB
     Route: 058
     Dates: start: 20201207
  14. XOLAIR [Suspect]
     Active Substance: OMALIZUMAB
     Indication: PSORIASIS
     Route: 058
     Dates: start: 20180821

REACTIONS (43)
  - Anaphylactic shock [Recovered/Resolved]
  - Sinusitis [Unknown]
  - Peripheral swelling [Recovered/Resolved]
  - Sputum discoloured [Not Recovered/Not Resolved]
  - Erythema [Not Recovered/Not Resolved]
  - Secretion discharge [Unknown]
  - Dyspnoea [Not Recovered/Not Resolved]
  - Concomitant disease aggravated [Unknown]
  - Anaemia [Unknown]
  - Nasopharyngitis [Recovering/Resolving]
  - Bronchitis chronic [Unknown]
  - Cough [Unknown]
  - Sputum abnormal [Unknown]
  - Seasonal allergy [Unknown]
  - Decreased appetite [Not Recovered/Not Resolved]
  - Rhinitis allergic [Recovering/Resolving]
  - Pneumonia [Recovering/Resolving]
  - Skin plaque [Not Recovered/Not Resolved]
  - Increased viscosity of bronchial secretion [Recovering/Resolving]
  - Suffocation feeling [Unknown]
  - Eye irritation [Unknown]
  - Product use in unapproved indication [Unknown]
  - Abdominal distension [Not Recovered/Not Resolved]
  - Rhinorrhoea [Not Recovered/Not Resolved]
  - Pyrexia [Not Recovered/Not Resolved]
  - Productive cough [Unknown]
  - Blood pressure decreased [Recovering/Resolving]
  - Pericarditis [Unknown]
  - Oropharyngeal pain [Not Recovered/Not Resolved]
  - Haemoptysis [Not Recovered/Not Resolved]
  - Systemic lupus erythematosus [Unknown]
  - Bronchitis [Unknown]
  - Fibromyalgia [Unknown]
  - Pharyngeal swelling [Recovered/Resolved]
  - Heart rate increased [Unknown]
  - Oesophageal candidiasis [Unknown]
  - Dysphonia [Unknown]
  - Off label use [Unknown]
  - Drug ineffective [Unknown]
  - Mucosal membrane hyperplasia [Unknown]
  - Hypersensitivity [Recovering/Resolving]
  - Dyspnoea at rest [Unknown]
  - Dysphagia [Recovered/Resolved]

NARRATIVE: CASE EVENT DATE: 2017
